FAERS Safety Report 15947746 (Version 2)
Quarter: 2020Q3

REPORT INFORMATION
  Report Type: Spontaneous
  Country: GB (occurrence: GB)
  Receive Date: 20190211
  Receipt Date: 20190221
  Transmission Date: 20201104
  Serious: Yes (Other)
  Sender: FDA-Public Use
  Company Number: GB-ROCHE-2263346

PATIENT
  Age: 55 Year
  Sex: Female

DRUGS (1)
  1. ALECTINIB. [Suspect]
     Active Substance: ALECTINIB
     Indication: LUNG NEOPLASM MALIGNANT
     Route: 065
     Dates: start: 201810

REACTIONS (4)
  - Nephritis [Unknown]
  - Brain natriuretic peptide increased [Unknown]
  - Cardiac failure congestive [Unknown]
  - Acute kidney injury [Unknown]
